FAERS Safety Report 10410819 (Version 1)
Quarter: 2014Q3

REPORT INFORMATION
  Report Type: Spontaneous
  Country: US (occurrence: US)
  Receive Date: 20140826
  Receipt Date: 20140826
  Transmission Date: 20150326
  Serious: No
  Sender: FDA-Public Use
  Company Number: US-BRISTOL-MYERS SQUIBB COMPANY-19209410

PATIENT
  Age: 24 Year
  Sex: Female
  Weight: 52.15 kg

DRUGS (1)
  1. KENALOG-10 [Suspect]
     Active Substance: TRIAMCINOLONE ACETONIDE
     Indication: KELOID SCAR
     Dates: start: 20130714

REACTIONS (2)
  - Injection site atrophy [Unknown]
  - Skin atrophy [Unknown]

NARRATIVE: CASE EVENT DATE: 2013
